FAERS Safety Report 9800442 (Version 3)
Quarter: 2014Q1

REPORT INFORMATION
  Report Type: Report from Study
  Country: GB (occurrence: GB)
  Receive Date: 20140107
  Receipt Date: 20140129
  Transmission Date: 20141002
  Serious: Yes (Death, Hospitalization, Disabling)
  Sender: FDA-Public Use
  Company Number: GB-ROCHE-1328897

PATIENT
  Age: 84 Year
  Sex: Female
  Weight: 76 kg

DRUGS (7)
  1. RANIBIZUMAB [Suspect]
     Indication: PRODUCT USED FOR UNKNOWN INDICATION
     Route: 050
     Dates: start: 20120320
  2. CEPHALEXIN [Concomitant]
  3. DIGOXIN [Concomitant]
  4. BISOPROLOL [Concomitant]
  5. PARACETAMOL [Concomitant]
  6. WARFARIN [Concomitant]
  7. CODEINE PHOSPHATE [Concomitant]

REACTIONS (7)
  - Pneumonia [Fatal]
  - Multi-organ failure [Fatal]
  - Sepsis [Fatal]
  - Polymyalgia rheumatica [Not Recovered/Not Resolved]
  - Urinary tract infection [Not Recovered/Not Resolved]
  - Red blood cell sedimentation rate increased [Unknown]
  - C-reactive protein increased [Not Recovered/Not Resolved]
